FAERS Safety Report 19139517 (Version 1)
Quarter: 2021Q2

REPORT INFORMATION
  Report Type: Spontaneous
  Country: US (occurrence: US)
  Receive Date: 20210415
  Receipt Date: 20210415
  Transmission Date: 20210717
  Serious: Yes (Other)
  Sender: FDA-Public Use
  Company Number: None

PATIENT
  Age: 37 Year
  Sex: Female
  Weight: 87.75 kg

DRUGS (10)
  1. ENBREL [Suspect]
     Active Substance: ETANERCEPT
     Dosage: ?          OTHER FREQUENCY:WEEKLY;?
     Route: 058
  2. LORATADINE 10MG [Concomitant]
     Active Substance: LORATADINE
  3. CHOLECALCIFEROL 50,000 UNITS [Concomitant]
  4. FLUTICASONE 50MCG NASAL SPRAY [Concomitant]
  5. PANTOPRAZOLE 40MG [Concomitant]
     Active Substance: PANTOPRAZOLE SODIUM
  6. PAROXETINE 20MG [Concomitant]
     Active Substance: PAROXETINE
  7. HYDROXYCHLOROQUINE 200MG [Concomitant]
     Active Substance: HYDROXYCHLOROQUINE
  8. HYDROXYZINE PAMOATE 25MG [Concomitant]
     Active Substance: HYDROXYZINE PAMOATE
  9. ALPRAZOLAM 0.5MG [Concomitant]
     Active Substance: ALPRAZOLAM
  10. PREDNISONE 5MG [Concomitant]
     Active Substance: PREDNISONE

REACTIONS (5)
  - Nausea [None]
  - Fatigue [None]
  - Mood altered [None]
  - Abnormal behaviour [None]
  - Aggression [None]

NARRATIVE: CASE EVENT DATE: 20210415
